FAERS Safety Report 7527122-0 (Version None)
Quarter: 2011Q2

REPORT INFORMATION
  Report Type: 
  Country: None (occurrence: None)
  Receive Date: 20110607
  Receipt Date: 20110524
  Transmission Date: 20111010
  Serious: Yes (Hospitalization)
  Sender: FDA-Public Use
  Company Number: BE-AMGEN-US231525

PATIENT
  Age: 72 Year
  Sex: Female
  Weight: 73 kg

DRUGS (2)
  1. METHYLPREDNISOLONE [Concomitant]
     Dosage: 2 MG, QD
     Route: 048
     Dates: start: 20020401
  2. ETANERCEPT [Suspect]
     Indication: RHEUMATOID ARTHRITIS
     Dosage: 25 MG, 2 TIMES/WK
     Route: 058
     Dates: start: 20020905, end: 20030423

REACTIONS (2)
  - RENAL CELL CARCINOMA [None]
  - OVARIAN ADENOMA [None]
